FAERS Safety Report 10018245 (Version 1)
Quarter: 2014Q1

REPORT INFORMATION
  Report Type: Spontaneous
  Country: US (occurrence: US)
  Receive Date: 20140318
  Receipt Date: 20140318
  Transmission Date: 20141002
  Serious: Yes (Death)
  Sender: FDA-Public Use
  Company Number: US-BRISTOL-MYERS SQUIBB COMPANY-19553734

PATIENT
  Age: 60 Year
  Sex: Male

DRUGS (4)
  1. ERBITUX [Suspect]
     Indication: ADENOCARCINOMA OF COLON
     Dates: start: 2011, end: 201205
  2. FOLINIC ACID [Concomitant]
  3. 5-FLUOROURACIL [Concomitant]
  4. IRINOTECAN [Concomitant]

REACTIONS (1)
  - Malignant neoplasm progression [Fatal]
